FAERS Safety Report 12966024 (Version 2)
Quarter: 2016Q4

REPORT INFORMATION
  Report Type: Report from Study
  Country: US (occurrence: US)
  Receive Date: 20161122
  Receipt Date: 20161208
  Transmission Date: 20170207
  Serious: Yes (Death, Hospitalization, Other)
  Sender: FDA-Public Use
  Company Number: US-009507513-1611USA007838

PATIENT
  Age: 78 Year
  Sex: Female

DRUGS (2)
  1. KEYTRUDA [Suspect]
     Active Substance: PEMBROLIZUMAB
     Indication: OVARIAN CANCER
     Dosage: STRENGTH: 100 MG
     Route: 042
     Dates: start: 201608
  2. KEYTRUDA [Suspect]
     Active Substance: PEMBROLIZUMAB
     Dosage: STRENGTH: 100 MG
     Route: 042
     Dates: start: 201608

REACTIONS (9)
  - Macular degeneration [Unknown]
  - Nausea [Unknown]
  - Therapeutic response unexpected [Unknown]
  - Death [Fatal]
  - Neuropathy peripheral [Unknown]
  - Retinal disorder [Unknown]
  - Vomiting [Unknown]
  - Product use issue [Unknown]
  - Diarrhoea [Unknown]

NARRATIVE: CASE EVENT DATE: 2016
